FAERS Safety Report 8133810 (Version 16)
Quarter: 2012Q4

REPORT INFORMATION
  Report Type: Report from Study
  Country: DE (occurrence: DE)
  Receive Date: 20110913
  Receipt Date: 20121114
  Transmission Date: 20130627
  Serious: Yes (Hospitalization)
  Sender: FDA-Public Use
  Company Number: DE-BRISTOL-MYERS SQUIBB COMPANY-16046146

PATIENT
  Age: 53 Year
  Sex: Male
  Weight: 72 kg

DRUGS (16)
  1. IPILIMUMAB [Suspect]
     Indication: MALIGNANT MELANOMA
     Dosage: Number of cycles:4,Last inf:22Jul11,Restarted:20May11-stoped:22Jul11
     Route: 042
     Dates: start: 20110520, end: 20110722
  2. URBASON [Concomitant]
     Dosage: IV route:150mg:14S-15Sep,160mg:16-17Sep,128mg:18-19Sep,16Microgram:16-17Sep
Oral:32mg:1Oct-23Oct11
     Route: 048
     Dates: start: 20110914, end: 20111023
  3. CLEXANE [Concomitant]
  4. IBUHEXAL [Concomitant]
  5. RANITIC [Concomitant]
     Dates: start: 20110812, end: 20110913
  6. PREDNISOLONE [Concomitant]
     Indication: DIARRHOEA
     Dosage: 12Aug11-23aug;24Aug-13Sep11,01Oct11-12Oct11(32mg).
     Route: 048
     Dates: start: 20110812, end: 20111023
  7. PANTOZOL [Concomitant]
     Route: 048
     Dates: start: 20110914
  8. PARACETAMOL [Concomitant]
     Route: 048
     Dates: start: 20110916
  9. VALACICLOVIR [Concomitant]
     Route: 048
     Dates: start: 20111001
  10. FLUCONAZOLE [Concomitant]
     Dosage: 300mg:16Sep2011-ong
     Route: 048
     Dates: start: 20111001
  11. ZINACEF [Concomitant]
     Route: 042
     Dates: start: 20110916
  12. METHYLPREDNISONE [Concomitant]
     Route: 048
     Dates: start: 20111001, end: 20111023
  13. PERFALGAN IV [Concomitant]
     Dates: start: 20111023
  14. CLONT [Concomitant]
  15. SALOFALK [Concomitant]
     Dates: start: 20110914
  16. FORTECORTIN [Concomitant]
     Route: 048

REACTIONS (6)
  - Large intestine perforation [Not Recovered/Not Resolved]
  - Colitis [Not Recovered/Not Resolved]
  - Diarrhoea [Unknown]
  - Pain [Unknown]
  - Headache [Not Recovered/Not Resolved]
  - Venous thrombosis [Not Recovered/Not Resolved]
